FAERS Safety Report 16310010 (Version 1)
Quarter: 2019Q2

REPORT INFORMATION
  Report Type: Report from Study
  Country: DE (occurrence: DE)
  Receive Date: 20190514
  Receipt Date: 20190514
  Transmission Date: 20190711
  Serious: No
  Sender: FDA-Public Use
  Company Number: DE-ROCHE-2316677

PATIENT
  Sex: Male
  Weight: 86 kg

DRUGS (5)
  1. OCRELIZUMAB. [Suspect]
     Active Substance: OCRELIZUMAB
     Indication: MULTIPLE SCLEROSIS
     Dosage: MOST RECENT DOSE WAS RECEIVED ON 18/APR/2018
     Route: 042
     Dates: start: 20180404
  2. DEKRISTOL [Concomitant]
     Active Substance: CHOLECALCIFEROL
     Indication: VITAMIN D DEFICIENCY
     Route: 048
     Dates: start: 20150721
  3. RANITIDIN [Concomitant]
     Active Substance: RANITIDINE HYDROCHLORIDE
     Indication: PROPHYLAXIS
     Dosage: INDICATION: PROPHYLAXIS OF SIDE EFFECTS OF OCREVUS ADMINISTRATION
     Route: 048
     Dates: start: 20180403, end: 20180405
  4. PREDNISOLUT [PREDNISOLONE HEMISUCCINATE] [Concomitant]
     Indication: PROPHYLAXIS
     Dosage: INDICATION: PROPHYLAXIS OF SIDE EFFECTS OF OCREVUS ADMINISTRATION
     Route: 042
     Dates: start: 20180404, end: 20180404
  5. AERIUS (DESLORATADINE) [Concomitant]
     Active Substance: DESLORATADINE
     Indication: PROPHYLAXIS
     Dosage: INDICATION: PROPHYLAXIS OF SIDE EFFECTS OF OCREVUS ADMINISTRATION
     Route: 048
     Dates: start: 20180403, end: 20180405

REACTIONS (1)
  - Nasopharyngitis [Recovered/Resolved]
